FAERS Safety Report 19734775 (Version 2)
Quarter: 2021Q3

REPORT INFORMATION
  Report Type: Spontaneous
  Country: ES (occurrence: ES)
  Receive Date: 20210824
  Receipt Date: 20210913
  Transmission Date: 20211014
  Serious: No
  Sender: FDA-Public Use
  Company Number: ES-LUPIN PHARMACEUTICALS INC.-2021-15405

PATIENT
  Age: 48 Year
  Sex: Male

DRUGS (3)
  1. LEVETIRACETAM. [Suspect]
     Active Substance: LEVETIRACETAM
     Indication: POSTURAL TREMOR
     Dosage: UNK
     Route: 065
  2. TOPIRAMAT [Suspect]
     Active Substance: TOPIRAMATE
     Indication: POSTURAL TREMOR
     Dosage: UNK
     Route: 065
  3. GABAPENTIN. [Suspect]
     Active Substance: GABAPENTIN
     Indication: POSTURAL TREMOR
     Dosage: UNK
     Route: 065

REACTIONS (1)
  - Drug ineffective [Unknown]
